FAERS Safety Report 7293014-8 (Version None)
Quarter: 2011Q1

REPORT INFORMATION
  Report Type: 
  Country: None (occurrence: None)
  Receive Date: 20110203
  Receipt Date: 20090622
  Transmission Date: 20110831
  Serious: No
  Sender: FDA-Public Use
  Company Number: 2009-00068

PATIENT
  Age: 29 Year
  Sex: Female
  Weight: 47.6277 kg

DRUGS (1)
  1. ZICAM COLD REMEDY GEL SWABS [Suspect]
     Dosage: SPORADIC X 1 YEAR
     Dates: start: 20080101, end: 20090601

REACTIONS (1)
  - PAROSMIA [None]
